FAERS Safety Report 6326571-6 (Version None)
Quarter: 2009Q3

REPORT INFORMATION
  Report Type: 
  Country: None (occurrence: None)
  Receive Date: 20090821
  Receipt Date: 20090807
  Transmission Date: 20100115
  Serious: Yes (Hospitalization)
  Sender: FDA-Public Use
  Company Number: 1000008217

PATIENT
  Age: 27 Year
  Sex: Female

DRUGS (3)
  1. ESCITALOPRAM [Suspect]
     Indication: PANIC ATTACK
     Dosage: 15 MG (15 MG, 1 IN 1 D), ORAL
     Route: 048
     Dates: start: 20080701
  2. PULMICORT (SOLUTION) [Concomitant]
  3. CYPRETYL (TABLETS) [Concomitant]

REACTIONS (1)
  - LOSS OF CONSCIOUSNESS [None]
